FAERS Safety Report 5527338-9 (Version None)
Quarter: 2007Q4

REPORT INFORMATION
  Report Type: 
  Country: None (occurrence: None)
  Receive Date: 20071128
  Receipt Date: 20071116
  Transmission Date: 20080405
  Serious: Yes (Hospitalization)
  Sender: FDA-Public Use
  Company Number: B0496654A

PATIENT
  Age: 22 Day
  Sex: Male
  Weight: 2 kg

DRUGS (1)
  1. RETROVIR [Suspect]
     Indication: HIV INFECTION
     Dosage: 4.3MG FOUR TIMES PER DAY
     Route: 048
     Dates: start: 20070906, end: 20070929

REACTIONS (2)
  - ENTERITIS [None]
  - METHAEMOGLOBINAEMIA [None]
